FAERS Safety Report 4423251-9 (Version None)
Quarter: 2004Q3

REPORT INFORMATION
  Report Type: 
  Country: None (occurrence: None)
  Receive Date: 20040805
  Receipt Date: 20040723
  Transmission Date: 20050211
  Serious: Yes (Hospitalization)
  Sender: FDA-Public Use
  Company Number: 04P-163-0268226-00

PATIENT

DRUGS (1)
  1. DEPAKOTE [Suspect]
     Indication: SUICIDE ATTEMPT

REACTIONS (2)
  - OVERDOSE [None]
  - SUICIDE ATTEMPT [None]
